FAERS Safety Report 10227029 (Version 1)
Quarter: 2014Q2

REPORT INFORMATION
  Report Type: Spontaneous
  Country: US (occurrence: US)
  Receive Date: 20140610
  Receipt Date: 20140610
  Transmission Date: 20141212
  Serious: No
  Sender: FDA-Public Use
  Company Number: US-009507513-1406USA002763

PATIENT
  Age: 23 Year
  Sex: Female

DRUGS (1)
  1. NEXPLANON [Suspect]
     Indication: CONTRACEPTION
     Dosage: UNK
     Route: 059
     Dates: start: 20130613

REACTIONS (5)
  - Menorrhagia [Unknown]
  - Vaginal infection [Unknown]
  - Implant site pain [Unknown]
  - Nervousness [Unknown]
  - Vaginal discharge [Unknown]
